FAERS Safety Report 6761521-X (Version None)
Quarter: 2010Q2

REPORT INFORMATION
  Report Type: 
  Country: None (occurrence: None)
  Receive Date: 20100607
  Receipt Date: 20100524
  Transmission Date: 20101027
  Serious: Yes (Other)
  Sender: FDA-Public Use
  Company Number: 7005961

PATIENT
  Age: 55 Year
  Sex: Female

DRUGS (2)
  1. REBIF [Suspect]
     Indication: DRUG USE FOR UNKNOWN INDICATION
     Dosage: 44 MCG, 3 IN 1 WK, SUBCUTANEOUS
     Route: 058
     Dates: start: 20080218
  2. BACLOFEN [Concomitant]

REACTIONS (7)
  - ASTHENIA [None]
  - CONTUSION [None]
  - ERYTHEMA [None]
  - FATIGUE [None]
  - MOBILITY DECREASED [None]
  - MUSCLE SPASTICITY [None]
  - PLATELET COUNT DECREASED [None]
